FAERS Safety Report 7099788-3 (Version None)
Quarter: 2010Q4

REPORT INFORMATION
  Report Type: 
  Country: None (occurrence: None)
  Receive Date: 20101112
  Receipt Date: 20101101
  Transmission Date: 20110411
  Serious: Yes (Hospitalization)
  Sender: FDA-Public Use
  Company Number: ES-RB-016061-10

PATIENT
  Sex: Male
  Weight: 92 kg

DRUGS (3)
  1. SUBOXONE [Suspect]
     Route: 060
     Dates: start: 20100729, end: 20100729
  2. SUBOXONE [Suspect]
     Indication: DRUG ABUSE
     Route: 060
     Dates: start: 20100730, end: 20100809
  3. SUBOXONE [Suspect]
     Route: 060
     Dates: start: 20100810

REACTIONS (11)
  - DYSURIA [None]
  - ERYTHEMA [None]
  - HEADACHE [None]
  - HYPERTENSION [None]
  - MUSCLE SPASMS [None]
  - NAUSEA [None]
  - OEDEMA [None]
  - PALPITATIONS [None]
  - PARAESTHESIA [None]
  - RASH [None]
  - RESTLESSNESS [None]
